FAERS Safety Report 9649508 (Version 1)
Quarter: 2013Q4

REPORT INFORMATION
  Report Type: Spontaneous
  Country: US (occurrence: US)
  Receive Date: 20131028
  Receipt Date: 20131028
  Transmission Date: 20140711
  Serious: Yes (Other)
  Sender: FDA-Public Use
  Company Number: US-FRI-1000050523

PATIENT
  Age: 74 Year
  Sex: Male

DRUGS (4)
  1. DALIRESP [Suspect]
     Indication: CHRONIC OBSTRUCTIVE PULMONARY DISEASE
     Dosage: 500 MCG
     Route: 048
     Dates: start: 201310, end: 201310
  2. DILANTIN [Concomitant]
     Indication: CONVULSION
  3. SYNTHROID [Concomitant]
     Indication: HYPOTHYROIDISM
  4. CELEBREX [Concomitant]

REACTIONS (1)
  - Convulsion [Recovered/Resolved]
